FAERS Safety Report 11281837 (Version 1)
Quarter: 2015Q3

REPORT INFORMATION
  Report Type: Spontaneous
  Country: NL (occurrence: NL)
  Receive Date: 20150717
  Receipt Date: 20150717
  Transmission Date: 20151125
  Serious: Yes (Hospitalization, Other)
  Sender: FDA-Public Use
  Company Number: NL-BAUSCH-BL-2015-017222

PATIENT
  Age: 42 Year
  Sex: Male

DRUGS (1)
  1. HERBESSER [Suspect]
     Active Substance: DILTIAZEM HYDROCHLORIDE
     Indication: HYPERTENSION
     Route: 048

REACTIONS (6)
  - Aspartate aminotransferase increased [Recovered/Resolved]
  - Stevens-Johnson syndrome [Recovering/Resolving]
  - Headache [Unknown]
  - Proteinuria [Unknown]
  - Erythema multiforme [Recovering/Resolving]
  - Alanine aminotransferase increased [Recovered/Resolved]
